FAERS Safety Report 5524403-7 (Version None)
Quarter: 2007Q4

REPORT INFORMATION
  Report Type: 
  Country: None (occurrence: None)
  Receive Date: 20071121
  Receipt Date: 20071112
  Transmission Date: 20080405
  Serious: Yes (Other)
  Sender: FDA-Public Use
  Company Number: US-PFIZER INC-2007097116

PATIENT
  Sex: Female
  Weight: 87.272 kg

DRUGS (7)
  1. CHANTIX [Suspect]
     Indication: SMOKING CESSATION THERAPY
     Dates: start: 20070908, end: 20071022
  2. MOBIC [Concomitant]
     Indication: ARTHRITIS
  3. MONTELUKAST SODIUM [Concomitant]
     Indication: HYPERSENSITIVITY
  4. VITAMIN CAP [Concomitant]
  5. CALCIUM [Concomitant]
  6. METHYLSULFONYLMETHANE [Concomitant]
     Indication: ARTHRITIS
  7. ACETYLSALICYLIC ACID SRT [Concomitant]

REACTIONS (5)
  - CONFUSIONAL STATE [None]
  - HALLUCINATION, VISUAL [None]
  - SPEECH DISORDER [None]
  - TRANSIENT ISCHAEMIC ATTACK [None]
  - WEIGHT INCREASED [None]
